FAERS Safety Report 9377328 (Version 2)
Quarter: 2013Q3

REPORT INFORMATION
  Report Type: Report from Study
  Country: DE (occurrence: DE)
  Receive Date: 20130701
  Receipt Date: 20130814
  Transmission Date: 20140515
  Serious: Yes (Other)
  Sender: FDA-Public Use
  Company Number: PHHY2011DE103144

PATIENT
  Age: 81 Year
  Sex: Female
  Weight: 78 kg

DRUGS (16)
  1. AMN107 [Suspect]
     Indication: CHRONIC MYELOID LEUKAEMIA
     Dosage: 300 MG, BID
     Route: 048
     Dates: start: 20110223
  2. AMN107 [Suspect]
     Dosage: 600 MG, PER DAY
     Route: 048
     Dates: start: 20110310, end: 20110330
  3. ASS 100 [Suspect]
     Indication: THROMBOCYTOSIS
     Dosage: 100 MG, QD
     Route: 048
     Dates: start: 20110331
  4. RESTEX [Concomitant]
     Indication: RESTLESS LEGS SYNDROME
     Dosage: 100 MG, QD
     Dates: start: 20110331
  5. MST [Concomitant]
     Indication: PAIN
     Dosage: 20 MG, BID
     Route: 048
     Dates: start: 201006
  6. XIPAMIDE [Concomitant]
     Indication: OEDEMA
     Dosage: 20 MG, QD
     Route: 048
     Dates: start: 20110331
  7. TORASEMIDE [Concomitant]
     Dosage: UNK
     Dates: start: 201006, end: 201103
  8. MIRTAZAPINE [Concomitant]
     Dosage: UNK
     Dates: start: 201006, end: 201103
  9. VERTIGOHEEL [Concomitant]
     Dosage: UNK
     Dates: start: 201006, end: 201103
  10. MAGNESIUM [Concomitant]
     Dosage: UNK
     Dates: start: 20110331, end: 20111019
  11. PANTOPRAZOLE [Concomitant]
     Dosage: UNK
     Dates: start: 20110331, end: 20120123
  12. NOVAMINSULFON [Concomitant]
     Dosage: UNK
     Dates: start: 20110331
  13. OMEPRAZOLE [Concomitant]
     Dosage: UNK
     Dates: start: 20120717
  14. LYRICA [Concomitant]
     Dosage: UNK
     Dates: start: 20120717
  15. METAMIZOLE [Concomitant]
     Dosage: UNK
     Dates: start: 20120717
  16. RAMIPRIL [Concomitant]
     Dosage: UNK
     Dates: start: 20120717

REACTIONS (1)
  - Gastritis [Recovered/Resolved]
